FAERS Safety Report 14057312 (Version 4)
Quarter: 2017Q4

REPORT INFORMATION
  Report Type: Spontaneous
  Country: JP (occurrence: JP)
  Receive Date: 20171006
  Receipt Date: 20171221
  Transmission Date: 20180321
  Serious: Yes (Death, Life-Threatening, Hospitalization)
  Sender: FDA-Public Use
  Company Number: JP-PFIZER INC-2017408379

PATIENT
  Age: 84 Year
  Sex: Female
  Weight: 38 kg

DRUGS (11)
  1. RHEUMATREX [Suspect]
     Active Substance: METHOTREXATE SODIUM
     Indication: RHEUMATOID ARTHRITIS
     Dosage: 6 MG, WEEKLY
     Route: 048
     Dates: start: 20170818, end: 20170908
  2. AMLODIPINE [Concomitant]
     Active Substance: AMLODIPINE BESYLATE
     Dosage: 2.5 MG, 1X/DAY
     Route: 048
     Dates: start: 20170818, end: 20170908
  3. BLOPRESS [Concomitant]
     Active Substance: CANDESARTAN CILEXETIL
     Dosage: 4 MG, 1X/DAY
     Route: 048
     Dates: start: 20170818, end: 20170908
  4. GLAKAY [Concomitant]
     Active Substance: MENATETRENONE
     Dosage: 15 MG, 3X/DAY
     Route: 048
     Dates: start: 20170818, end: 20170908
  5. LANSOPRAZOLE. [Interacting]
     Active Substance: LANSOPRAZOLE
     Dosage: 15 MG, 1X/DAY
     Route: 048
     Dates: start: 20170818, end: 20170908
  6. ACTONEL [Concomitant]
     Active Substance: RISEDRONATE SODIUM
     Dosage: 17.5 MG, WEEKLY
     Route: 048
     Dates: start: 20170818, end: 20170908
  7. FEBURIC [Concomitant]
     Active Substance: FEBUXOSTAT
     Dosage: 10 MG, 1X/DAY
     Route: 048
     Dates: start: 20170818, end: 20170908
  8. JANUVIA [Concomitant]
     Active Substance: SITAGLIPTIN PHOSPHATE
     Dosage: 25 MG, 1X/DAY
     Route: 048
     Dates: start: 20170818, end: 20170908
  9. CELECOX [Interacting]
     Active Substance: CELECOXIB
     Dosage: 100 MG, 1X/DAY
     Route: 048
     Dates: start: 20170818, end: 20170908
  10. PREDONINE [Concomitant]
     Active Substance: PREDNISOLONE
     Dosage: 1 MG, 1X/DAY
     Route: 048
     Dates: start: 20170818, end: 20170908
  11. MYSLEE [Concomitant]
     Active Substance: ZOLPIDEM TARTRATE
     Dosage: 5 MG, 1X/DAY
     Route: 048
     Dates: start: 20170818, end: 20170908

REACTIONS (7)
  - Sepsis [Fatal]
  - Cerebral infarction [Fatal]
  - Oedema [Unknown]
  - Bone marrow failure [Recovered/Resolved]
  - Disseminated intravascular coagulation [Recovered/Resolved with Sequelae]
  - Respiratory failure [Fatal]
  - Drug interaction [Fatal]

NARRATIVE: CASE EVENT DATE: 20170908
